FAERS Safety Report 4301723-5 (Version None)
Quarter: 2004Q1

REPORT INFORMATION
  Report Type: 
  Country: None (occurrence: None)
  Receive Date: 20040219
  Receipt Date: 20040213
  Transmission Date: 20041129
  Serious: Yes (Disabling)
  Sender: FDA-Public Use
  Company Number: HQ5326314NOV2002

PATIENT
  Sex: Female

DRUGS (10)
  1. DIMETAPP [Suspect]
     Dosage: ORAL
     Route: 048
     Dates: start: 19990508
  2. ALKA-SELTZER PLUS COLD (ACETYLSALICYLIC ACID/CHLORPHENAMINE MALEATE/PH [Suspect]
     Indication: NASOPHARYNGITIS
     Dosage: ORAL
     Route: 048
     Dates: start: 19990508
  3. COMTREX (CHLORPHENAMINE MALEATE/DEXTROMETHORPHAN HYDROBROMIDE/PARACETA [Suspect]
     Indication: NASOPHARYNGITIS
     Dosage: ORAL
     Route: 048
     Dates: start: 19990508
  4. PHENYLPROPANOLAMINE HCL [Suspect]
     Dosage: ORAL
     Route: 048
     Dates: start: 19990508
  5. ZESTRIL [Concomitant]
  6. NORVASC [Concomitant]
  7. ZOLOFT [Concomitant]
  8. XANAX [Concomitant]
  9. CELEBREX [Concomitant]
  10. PARAFON FORTE (CHLORZOXAZONE/PARACETAMOL) [Concomitant]

REACTIONS (1)
  - CEREBROVASCULAR ACCIDENT [None]
